FAERS Safety Report 7919742-6 (Version None)
Quarter: 2011Q4

REPORT INFORMATION
  Report Type: 
  Country: None (occurrence: None)
  Receive Date: 20111117
  Receipt Date: 20111109
  Transmission Date: 20120403
  Serious: Yes (Other)
  Sender: FDA-Public Use
  Company Number: JP-ASTELLAS-2011JP008213

PATIENT
  Age: 33 Year
  Sex: Female

DRUGS (12)
  1. REFLEX [Concomitant]
     Dosage: 15 MG, UNKNOWN/D
     Route: 048
     Dates: end: 20111026
  2. LENDORMIN [Concomitant]
     Dosage: 0.25 MG, UNKNOWN/D
     Route: 048
  3. CALCIUM CARBONATE [Concomitant]
     Dosage: 1500 MG, UNKNOWN/D
     Route: 048
     Dates: end: 20111026
  4. MYCOPHENOLATE MOFETIL (CELLCEPT) [Suspect]
     Indication: PROPHYLAXIS AGAINST TRANSPLANT REJECTION
     Dosage: 1500 MG, UNKNOWN/D
     Route: 048
     Dates: start: 20111013
  5. SLOW-K [Concomitant]
     Dosage: 600 MG, UNKNOWN/D
     Route: 048
     Dates: end: 20111026
  6. PROGRAF [Suspect]
     Indication: PROPHYLAXIS AGAINST TRANSPLANT REJECTION
     Dosage: 12 MG, UNKNOWN/D
     Route: 048
     Dates: start: 20111013, end: 20111018
  7. LIPITOR [Concomitant]
     Dosage: 20 MG, UNKNOWN/D
     Route: 048
  8. RENAGEL [Concomitant]
     Dosage: 750 MG, UNKNOWN/D
     Route: 048
     Dates: end: 20111026
  9. PROGRAF [Suspect]
     Dosage: 10 MG, UNKNOWN/D
     Route: 048
     Dates: start: 20111019
  10. TEPRENONE [Concomitant]
     Dosage: 150 MG, UNKNOWN/D
     Route: 048
     Dates: end: 20111026
  11. LANSOPRAZOLE [Concomitant]
     Dosage: 15 MG, UNKNOWN/D
     Route: 048
  12. GASMOTIN [Concomitant]
     Dosage: 45 MG, UNKNOWN/D
     Route: 048
     Dates: end: 20111026

REACTIONS (1)
  - HYPERPHOSPHATAEMIA [None]
